FAERS Safety Report 20527734 (Version 2)
Quarter: 2022Q2

REPORT INFORMATION
  Report Type: Spontaneous
  Country: AR (occurrence: AR)
  Receive Date: 20220228
  Receipt Date: 20220413
  Transmission Date: 20220721
  Serious: No
  Sender: FDA-Public Use
  Company Number: AR-PFIZER INC-202200185630

PATIENT
  Age: 8 Year
  Sex: Female

DRUGS (1)
  1. GENOTROPIN [Suspect]
     Active Substance: SOMATROPIN
     Indication: Turner^s syndrome
     Dosage: 1.1 MG

REACTIONS (1)
  - Wrong technique in device usage process [Unknown]

NARRATIVE: CASE EVENT DATE: 20220124
